FAERS Safety Report 5360933-9 (Version None)
Quarter: 2007Q2

REPORT INFORMATION
  Report Type: 
  Country: None (occurrence: None)
  Receive Date: 20070618
  Receipt Date: 20070606
  Transmission Date: 20071010
  Serious: Yes (Death, Other)
  Sender: FDA-Public Use
  Company Number: JP-PFIZER INC-2007005850

PATIENT
  Sex: Male
  Weight: 39 kg

DRUGS (10)
  1. VFEND [Suspect]
     Indication: BRONCHOPULMONARY ASPERGILLOSIS
     Route: 048
     Dates: start: 20061209, end: 20061212
  2. VFEND [Suspect]
     Indication: ASPERGILLOMA
     Route: 048
     Dates: start: 20061221, end: 20061223
  3. ASPIRIN [Concomitant]
     Route: 048
  4. MARZULENE S [Concomitant]
     Route: 048
  5. AMARYL [Concomitant]
     Route: 048
  6. MAGNESIUM OXIDE [Concomitant]
     Route: 048
  7. MUCOSOLVAN [Concomitant]
     Route: 048
  8. CLARITHROMYCIN [Concomitant]
     Route: 048
  9. MICAFUNGIN [Concomitant]
     Route: 042
  10. TIENAM [Concomitant]
     Route: 042

REACTIONS (4)
  - DELUSION [None]
  - HALLUCINATION [None]
  - PNEUMONIA [None]
  - RESTLESSNESS [None]
